FAERS Safety Report 5014266-0 (Version None)
Quarter: 2006Q2

REPORT INFORMATION
  Report Type: 
  Country: None (occurrence: None)
  Receive Date: 20060414
  Receipt Date: 20060213
  Transmission Date: 20061013
  Serious: No
  Sender: FDA-Public Use
  Company Number: 2006SP000755

PATIENT
  Age: 46 Year
  Sex: Female
  Weight: 83.9154 kg

DRUGS (5)
  1. LUNESTA [Suspect]
     Indication: INITIAL INSOMNIA
     Dosage: 1 MG; UNKNOWN; ORAL     1 MG;1X;ORAL
     Route: 048
     Dates: start: 20060210, end: 20060211
  2. LUNESTA [Suspect]
     Indication: INITIAL INSOMNIA
     Dosage: 1 MG; UNKNOWN; ORAL     1 MG;1X;ORAL
     Route: 048
     Dates: start: 20060211, end: 20060211
  3. PROZAC [Concomitant]
  4. TEMAZEPAM [Concomitant]
  5. CLONAZEPAM [Concomitant]

REACTIONS (2)
  - INITIAL INSOMNIA [None]
  - NASOPHARYNGITIS [None]
